FAERS Safety Report 6658706-X (Version None)
Quarter: 2010Q1

REPORT INFORMATION
  Report Type: 
  Country: None (occurrence: None)
  Receive Date: 20100330
  Receipt Date: 20100321
  Transmission Date: 20100710
  Serious: Yes (Other)
  Sender: FDA-Public Use
  Company Number: PHEH2010US01288

PATIENT
  Sex: Female

DRUGS (8)
  1. RECLAST [Suspect]
     Dosage: UNK
     Dates: start: 20091103
  2. DEMEROL [Concomitant]
  3. DIAZEPAM [Concomitant]
  4. NEURONTIN [Concomitant]
  5. ASPIRIN [Concomitant]
  6. CALTRATE PLUS [Concomitant]
  7. VITAMIN D [Concomitant]
  8. PRILOSEC [Concomitant]

REACTIONS (5)
  - ARTHRALGIA [None]
  - BONE PAIN [None]
  - GROIN PAIN [None]
  - MYALGIA [None]
  - PAIN IN EXTREMITY [None]
